FAERS Safety Report 8523217-3 (Version None)
Quarter: 2012Q3

REPORT INFORMATION
  Report Type: 
  Country: None (occurrence: None)
  Receive Date: 20120720
  Receipt Date: 20120712
  Transmission Date: 20120928
  Serious: Yes (Hospitalization)
  Sender: FDA-Public Use
  Company Number: US-BAYER-2012-071425

PATIENT
  Age: 18 Year
  Sex: Female

DRUGS (2)
  1. IRON SULFATETHIAMIN COMPOUND TAB [Concomitant]
  2. YAZ [Suspect]

REACTIONS (1)
  - DEEP VEIN THROMBOSIS [None]
